FAERS Safety Report 19770217 (Version 8)
Quarter: 2023Q1

REPORT INFORMATION
  Report Type: Report from Study
  Country: CA (occurrence: CA)
  Receive Date: 20210901
  Receipt Date: 20230213
  Transmission Date: 20230418
  Serious: Yes (Other)
  Sender: FDA-Public Use
  Company Number: NVSC2019CA050854

PATIENT
  Age: 68 Year
  Sex: Female

DRUGS (4)
  1. SANDOSTATIN LAR DEPOT [Suspect]
     Active Substance: OCTREOTIDE ACETATE
     Indication: Carcinoid tumour
     Dosage: 30 MG, QMO (EVERY 4 WEEKS)
     Route: 030
     Dates: start: 20191025
  2. SANDOSTATIN LAR DEPOT [Suspect]
     Active Substance: OCTREOTIDE ACETATE
  3. SANDOSTATIN LAR DEPOT [Suspect]
     Active Substance: OCTREOTIDE ACETATE
  4. OCTREOTIDE [Concomitant]
     Active Substance: OCTREOTIDE
     Indication: Carcinoid tumour
     Dosage: 120 UG
     Route: 058
     Dates: start: 20191010, end: 20191010

REACTIONS (13)
  - Gastrointestinal carcinoma [Unknown]
  - Blood pressure systolic increased [Unknown]
  - Stress [Unknown]
  - Blood pressure increased [Unknown]
  - Nasopharyngitis [Unknown]
  - Nasal congestion [Unknown]
  - COVID-19 [Not Recovered/Not Resolved]
  - Oropharyngeal pain [Unknown]
  - Headache [Unknown]
  - Rhinorrhoea [Unknown]
  - Dry throat [Not Recovered/Not Resolved]
  - Lip pain [Not Recovered/Not Resolved]
  - Asthenia [Not Recovered/Not Resolved]

NARRATIVE: CASE EVENT DATE: 20200312
